FAERS Safety Report 17895858 (Version 1)
Quarter: 2020Q2

REPORT INFORMATION
  Report Type: Spontaneous
  Country: US (occurrence: US)
  Receive Date: 20200615
  Receipt Date: 20200615
  Transmission Date: 20200714
  Serious: Yes (Hospitalization)
  Sender: FDA-Public Use
  Company Number: None

PATIENT
  Age: 68 Year
  Sex: Male
  Weight: 135.9 kg

DRUGS (15)
  1. LEVOTHYROXINE 100MCG [Concomitant]
     Active Substance: LEVOTHYROXINE
     Dates: start: 20200318
  2. BEVACIZUMAB. [Suspect]
     Active Substance: BEVACIZUMAB
     Indication: GLIOBLASTOMA MULTIFORME
     Dosage: ?          OTHER FREQUENCY:EVERY 2 WEEKS;?
     Route: 041
     Dates: start: 20191111, end: 20200519
  3. QUETIAPINE 25MG [Concomitant]
     Active Substance: QUETIAPINE
     Dates: start: 20190307
  4. ALLOPURINOL 300MG [Concomitant]
     Active Substance: ALLOPURINOL
     Dates: start: 20190307
  5. DOXYCYCLINE HYCLATE 100MG [Concomitant]
     Active Substance: DOXYCYCLINE HYCLATE
     Dates: start: 20200528
  6. KEPPRA 1500 MG [Concomitant]
     Dates: start: 20200519
  7. ENALAPRIL 20MG [Concomitant]
     Active Substance: ENALAPRIL
     Dates: start: 20190307
  8. MYRBETRIQ [Concomitant]
     Active Substance: MIRABEGRON
     Dates: start: 20190719
  9. TYLENOL [Concomitant]
     Active Substance: ACETAMINOPHEN
  10. NIVOLUMAB [Suspect]
     Active Substance: NIVOLUMAB
     Indication: GLIOBLASTOMA MULTIFORME
     Dosage: ?          OTHER FREQUENCY:EVERY TWO WEEKS;?
     Route: 042
     Dates: start: 20191111, end: 20200519
  11. CICLOPIROX. [Concomitant]
     Active Substance: CICLOPIROX
     Dates: start: 20200601
  12. LAMOTRIGINE 100MG [Concomitant]
     Active Substance: LAMOTRIGINE
     Dates: start: 20190920
  13. ESCITALOPRAM [Concomitant]
     Active Substance: ESCITALOPRAM OXALATE
     Dates: start: 20190719
  14. DEXAMETHASONE 2MG [Concomitant]
     Dates: start: 20200116
  15. PEPCID 20MG [Concomitant]
     Dates: start: 20190719

REACTIONS (9)
  - Asthenia [None]
  - Confusional state [None]
  - Slow speech [None]
  - Dysarthria [None]
  - Lethargy [None]
  - Gait disturbance [None]
  - Electroencephalogram abnormal [None]
  - Encephalopathy [None]
  - Somnolence [None]

NARRATIVE: CASE EVENT DATE: 20200601
